FAERS Safety Report 10897290 (Version 2)
Quarter: 2015Q1

REPORT INFORMATION
  Report Type: Spontaneous
  Country: US (occurrence: US)
  Receive Date: 20150309
  Receipt Date: 20150313
  Transmission Date: 20150721
  Serious: No
  Sender: FDA-Public Use
  Company Number: US-PFIZER INC-2015081012

PATIENT
  Sex: Female

DRUGS (2)
  1. ESTRADIOL. [Suspect]
     Active Substance: ESTRADIOL
     Dosage: 0.1 MG, UNK
  2. ESTRING [Suspect]
     Active Substance: ESTRADIOL
     Dosage: 2 MG, UNK (ABOUT A WEEK)

REACTIONS (3)
  - Fatigue [Unknown]
  - Mood swings [Unknown]
  - Palpitations [Unknown]
